FAERS Safety Report 9619254 (Version 3)
Quarter: 2013Q4

REPORT INFORMATION
  Report Type: Spontaneous
  Country: US (occurrence: US)
  Receive Date: 20131014
  Receipt Date: 20131018
  Transmission Date: 20140711
  Serious: Yes (Other)
  Sender: FDA-Public Use
  Company Number: US-SANOFI-AVENTIS-2013SA085712

PATIENT
  Age: 30 Year
  Sex: Female
  Weight: 56.29 kg

DRUGS (19)
  1. ENOXAPARIN SODIUM - WINTHROP [Suspect]
     Indication: THROMBOSIS
     Dosage: FREQUENCY - AT NIGHT
     Route: 048
     Dates: start: 20130105, end: 20130625
  2. ENOXAPARIN SODIUM - WINTHROP [Suspect]
     Indication: CEREBROVASCULAR ACCIDENT
     Dosage: FREQUENCY - AT NIGHT
     Route: 048
     Dates: start: 20130105, end: 20130625
  3. ENOXAPARIN SODIUM - WINTHROP [Suspect]
     Indication: THROMBOSIS
     Dosage: FREQUENCY - AT NIGHT
     Route: 048
     Dates: start: 20130105, end: 20130625
  4. ENOXAPARIN SODIUM - WINTHROP [Suspect]
     Indication: CEREBROVASCULAR ACCIDENT
     Dosage: FREQUENCY - AT NIGHT
     Route: 048
     Dates: start: 20130105, end: 20130625
  5. ENOXAPARIN SODIUM - WINTHROP [Suspect]
     Indication: THROMBOSIS
     Dosage: FREQUENCY - AT NIGHT
     Route: 048
     Dates: start: 201307
  6. ENOXAPARIN SODIUM - WINTHROP [Suspect]
     Indication: CEREBROVASCULAR ACCIDENT
     Dosage: FREQUENCY - AT NIGHT
     Route: 048
     Dates: start: 201307
  7. LEVAQUIN [Concomitant]
  8. CIPRO [Concomitant]
  9. DOXYCYCLINE [Concomitant]
  10. ULTRAM [Concomitant]
  11. CODEINE [Concomitant]
  12. EFFEXOR-XR [Concomitant]
     Indication: ANXIETY
  13. TOPAMAX [Concomitant]
     Indication: MIGRAINE
  14. DEXILANT [Concomitant]
     Indication: GASTROOESOPHAGEAL REFLUX DISEASE
  15. DESYREL [Concomitant]
     Indication: SLEEP DISORDER
  16. MIRENA [Concomitant]
     Indication: CONTRACEPTION
  17. MORPHINE [Concomitant]
  18. ROXICODONE [Concomitant]
  19. ZANAFLEX [Concomitant]

REACTIONS (7)
  - Thrombosis [Unknown]
  - Arthropathy [Unknown]
  - Fatigue [Not Recovered/Not Resolved]
  - Memory impairment [Not Recovered/Not Resolved]
  - Emotional disorder [Not Recovered/Not Resolved]
  - Hypersomnia [Unknown]
  - Drug dose omission [Unknown]
